FAERS Safety Report 4648333-8 (Version None)
Quarter: 2005Q2

REPORT INFORMATION
  Report Type: 
  Country: None (occurrence: None)
  Receive Date: 20050426
  Receipt Date: 20050426
  Transmission Date: 20051028
  Serious: Yes (Hospitalization)
  Sender: FDA-Public Use
  Company Number: None

PATIENT
  Age: 2 Year
  Sex: Female
  Weight: 14 kg

DRUGS (4)
  1. MERCAPTOPURINE [Suspect]
     Indication: ACUTE LYMPHOCYTIC LEUKAEMIA
     Dosage: ~ 50 MG PO QHS
     Route: 048
     Dates: start: 20050126, end: 20050209
  2. METHOTREXATE [Suspect]
     Dates: start: 20050202
  3. METHOTREXATE [Suspect]
     Dates: start: 20050302
  4. METHOTREXATE [Suspect]
     Dates: start: 20050309

REACTIONS (3)
  - MUCOSAL INFLAMMATION [None]
  - PANCYTOPENIA [None]
  - STOMATITIS [None]
